FAERS Safety Report 5017968-5 (Version None)
Quarter: 2006Q2

REPORT INFORMATION
  Report Type: 
  Country: None (occurrence: None)
  Receive Date: 20060605
  Receipt Date: 20060524
  Transmission Date: 20061013
  Serious: Yes (Hospitalization)
  Sender: FDA-Public Use
  Company Number: FR-GLAXOSMITHKLINE-B0425483A

PATIENT
  Age: 36 Year
  Sex: Female

DRUGS (3)
  1. ZIAGEN [Suspect]
     Indication: HIV INFECTION
     Dosage: 2UNIT PER DAY
     Route: 048
     Dates: start: 20030307, end: 20060304
  2. ZEFFIX [Suspect]
     Indication: HIV INFECTION
     Dosage: 1UNIT PER DAY
     Route: 048
     Dates: start: 20040707, end: 20060304
  3. KALETRA [Concomitant]
     Indication: HIV INFECTION
     Route: 065
     Dates: start: 20030307

REACTIONS (12)
  - ANAEMIA [None]
  - ASTHENIA [None]
  - BLOOD CREATININE INCREASED [None]
  - BLOOD LACTIC ACID INCREASED [None]
  - GENERAL PHYSICAL HEALTH DETERIORATION [None]
  - IRON DEFICIENCY [None]
  - LACTIC ACIDOSIS [None]
  - MYCOBACTERIUM AVIUM COMPLEX INFECTION [None]
  - RENAL IMPAIRMENT [None]
  - TACHYPNOEA [None]
  - VOMITING [None]
  - WEIGHT DECREASED [None]
